FAERS Safety Report 5123262-4 (Version None)
Quarter: 2006Q4

REPORT INFORMATION
  Report Type: 
  Country: None (occurrence: None)
  Receive Date: 20061009
  Receipt Date: 20061006
  Transmission Date: 20070319
  Serious: Yes (Hospitalization)
  Sender: FDA-Public Use
  Company Number: MX-GLAXOSMITHKLINE-A0622797A

PATIENT
  Sex: Female

DRUGS (3)
  1. AROPAX [Suspect]
     Indication: DEPRESSION
     Dosage: 20MG UNKNOWN
     Route: 048
     Dates: start: 20050601, end: 20061001
  2. VALPROATE SODIUM [Concomitant]
     Dosage: 20MG THREE TIMES PER DAY
  3. CLONAZEPAM [Concomitant]
     Dosage: 2MG FIVE TIMES PER DAY

REACTIONS (2)
  - ENDOMETRITIS [None]
  - OVARIAN CYST [None]
